FAERS Safety Report 11702415 (Version 1)
Quarter: 2015Q4

REPORT INFORMATION
  Report Type: Spontaneous
  Country: US (occurrence: US)
  Receive Date: 20151104
  Receipt Date: 20151104
  Transmission Date: 20160304
  Serious: No
  Sender: FDA-Public Use
  Company Number: US-ELI_LILLY_AND_COMPANY-US201101005010

PATIENT
  Age: 68 Year
  Sex: Female

DRUGS (1)
  1. FORTEO [Suspect]
     Active Substance: TERIPARATIDE
     Indication: OSTEOPOROSIS
     Dates: start: 20101204, end: 20101211

REACTIONS (9)
  - Headache [Unknown]
  - Dysphagia [Unknown]
  - Intentional product misuse [Unknown]
  - Pain in jaw [Unknown]
  - Myalgia [Unknown]
  - Pain in extremity [Unknown]
  - Flatulence [Recovered/Resolved]
  - Gastrooesophageal reflux disease [Unknown]
  - Abdominal discomfort [Unknown]

NARRATIVE: CASE EVENT DATE: 201012
